FAERS Safety Report 8602096-X (Version None)
Quarter: 2012Q3

REPORT INFORMATION
  Report Type: 
  Country: None (occurrence: None)
  Receive Date: 20120817
  Receipt Date: 20120807
  Transmission Date: 20120928
  Serious: Yes (Hospitalization, Other)
  Sender: FDA-Public Use
  Company Number: DE-JNJFOC-20120709224

PATIENT
  Sex: Male
  Weight: 110 kg

DRUGS (7)
  1. DURAGESIC-100 [Suspect]
     Indication: PRODUCT USED FOR UNKNOWN INDICATION
     Route: 062
  2. ONDANSETRON [Concomitant]
     Route: 065
  3. MOVIPREP [Concomitant]
     Route: 065
  4. XGEVA [Concomitant]
     Route: 065
  5. ZYTIGA [Suspect]
     Indication: PROSTATE CANCER
     Route: 048
     Dates: start: 20120119, end: 20120712
  6. PREDNISOLONE [Concomitant]
     Route: 065
     Dates: start: 20120101, end: 20120712
  7. MAGNESIUM [Concomitant]
     Route: 065

REACTIONS (4)
  - PAIN [None]
  - LIVER FUNCTION TEST ABNORMAL [None]
  - PROSTATIC SPECIFIC ANTIGEN INCREASED [None]
  - NIGHT SWEATS [None]
